FAERS Safety Report 4879807-2 (Version None)
Quarter: 2006Q1

REPORT INFORMATION
  Report Type: 
  Country: None (occurrence: None)
  Receive Date: 20060111
  Receipt Date: 20051229
  Transmission Date: 20060701
  Serious: Yes (Hospitalization)
  Sender: FDA-Public Use
  Company Number: MEDI-0003957

PATIENT
  Age: 2 Month
  Sex: Female
  Weight: 1.87 kg

DRUGS (2)
  1. SYNAGIS [Suspect]
     Indication: ANTIVIRAL PROPHYLAXIS
     Dosage: 28 + 15 ML, 1 IN 30 , INTRAMUSCULAR
     Route: 030
     Dates: start: 20051120, end: 20051222
  2. SYNAGIS [Suspect]
     Indication: ANTIVIRAL PROPHYLAXIS
     Dosage: 28 + 15 ML, 1 IN 30 , INTRAMUSCULAR
     Route: 030
     Dates: start: 20051120

REACTIONS (5)
  - APNOEA [None]
  - INTESTINAL STENOSIS [None]
  - RESPIRATORY DISTRESS [None]
  - SEPSIS [None]
  - STAPHYLOCOCCAL INFECTION [None]
